FAERS Safety Report 9243066 (Version 2)
Quarter: 2013Q2

REPORT INFORMATION
  Report Type: Spontaneous
  Country: DE (occurrence: DE)
  Receive Date: 20130419
  Receipt Date: 20130603
  Transmission Date: 20140414
  Serious: Yes (Hospitalization)
  Sender: FDA-Public Use
  Company Number: DE-ELI_LILLY_AND_COMPANY-DE201304003551

PATIENT
  Sex: Female

DRUGS (5)
  1. FORSTEO [Suspect]
     Indication: OSTEOPOROSIS
     Dosage: UNK UNK, QD
     Route: 058
     Dates: start: 20120823, end: 20130411
  2. NEBILET [Concomitant]
  3. ATACAND [Concomitant]
  4. CELEBREX [Concomitant]
  5. VITAMIN D [Concomitant]

REACTIONS (6)
  - Joint injury [Not Recovered/Not Resolved]
  - Bone pain [Not Recovered/Not Resolved]
  - Medication error [Not Recovered/Not Resolved]
  - Pain in extremity [Recovered/Resolved]
  - Paraesthesia [Recovered/Resolved]
  - Muscle spasms [Recovered/Resolved]
